FAERS Safety Report 9348428 (Version 2)
Quarter: 2013Q3

REPORT INFORMATION
  Report Type: Spontaneous
  Country: FR (occurrence: FR)
  Receive Date: 20130614
  Receipt Date: 20130911
  Transmission Date: 20140515
  Serious: Yes (Hospitalization, Other)
  Sender: FDA-Public Use
  Company Number: FR-TEVA-412421ISR

PATIENT
  Age: 60 Year
  Sex: Male
  Weight: 90 kg

DRUGS (9)
  1. FUROSEMIDE TEVA [Suspect]
     Indication: HYPERTENSION
     Dosage: 40 MILLIGRAM DAILY; ON NOON AND EVENING
     Route: 048
     Dates: start: 2012
  2. KARDEGIC 75MG [Concomitant]
     Dosage: 75 MILLIGRAM DAILY;
     Route: 048
  3. ATORVASTATIN 40MG [Concomitant]
     Dosage: 40 MILLIGRAM DAILY;
     Route: 048
  4. PERINDOPRIL 8MG [Concomitant]
     Dosage: 8 MILLIGRAM DAILY;
     Route: 048
  5. DUROGESIC 75 [Concomitant]
     Dosage: 75 MICROGRAM DAILY;
  6. LYRICA 75MG [Concomitant]
     Dosage: 225 MILLIGRAM DAILY;
  7. VERAPAMIL 120MG [Concomitant]
     Dosage: 120 MILLIGRAM DAILY;
  8. ACUPAN [Concomitant]
  9. MORPHINE [Concomitant]

REACTIONS (3)
  - Bladder dilatation [Recovered/Resolved]
  - Urinary retention [Recovered/Resolved]
  - Somnolence [Recovered/Resolved]
